FAERS Safety Report 20924902 (Version 1)
Quarter: 2022Q2

REPORT INFORMATION
  Report Type: Spontaneous
  Country: CN (occurrence: CN)
  Receive Date: 20220607
  Receipt Date: 20220607
  Transmission Date: 20220721
  Serious: Yes (Other)
  Sender: FDA-Public Use
  Company Number: CN-PFIZER INC-202200789309

PATIENT
  Age: 49 Year
  Sex: Female
  Weight: 65 kg

DRUGS (1)
  1. AZITHROMYCIN [Suspect]
     Active Substance: AZITHROMYCIN
     Indication: Cough variant asthma
     Dosage: 0.25 G, 1X/DAY
     Route: 048
     Dates: start: 20220526, end: 20220526

REACTIONS (1)
  - Electric shock sensation [Recovered/Resolved]

NARRATIVE: CASE EVENT DATE: 20220526
